FAERS Safety Report 19292761 (Version 1)
Quarter: 2021Q2

REPORT INFORMATION
  Report Type: Spontaneous
  Country: US (occurrence: US)
  Receive Date: 20210521
  Receipt Date: 20210521
  Transmission Date: 20210717
  Serious: No
  Sender: FDA-Public Use
  Company Number: None

PATIENT
  Age: 77 Year
  Sex: Male
  Weight: 103 kg

DRUGS (10)
  1. LISINOPRIL. [Concomitant]
     Active Substance: LISINOPRIL
  2. CALCIUM 600 HIGH POTENCY [Concomitant]
  3. CRESTOR [Concomitant]
     Active Substance: ROSUVASTATIN CALCIUM
  4. OMEPRAZOLE. [Concomitant]
     Active Substance: OMEPRAZOLE
  5. SENNOSIDES?DOCUSATE SODIUM [Concomitant]
     Active Substance: DOCUSATE SODIUM\SENNOSIDES
  6. VITAMIN D3 [Concomitant]
     Active Substance: CHOLECALCIFEROL
  7. ASPIR?LOW [Concomitant]
     Active Substance: ASPIRIN
  8. ZYRTEC [Concomitant]
     Active Substance: CETIRIZINE HYDROCHLORIDE
  9. ABIRATERONE. [Suspect]
     Active Substance: ABIRATERONE ACETATE
     Indication: PROSTATE CANCER
     Route: 048
     Dates: start: 20210412
  10. PREDNISONE. [Concomitant]
     Active Substance: PREDNISONE

REACTIONS (1)
  - Abdominal distension [None]

NARRATIVE: CASE EVENT DATE: 20210503
